FAERS Safety Report 6165409-7 (Version None)
Quarter: 2009Q2

REPORT INFORMATION
  Report Type: 
  Country: None (occurrence: None)
  Receive Date: 20090423
  Receipt Date: 20090421
  Transmission Date: 20091009
  Serious: Yes (Hospitalization)
  Sender: FDA-Public Use
  Company Number: FR-BRISTOL-MYERS SQUIBB COMPANY-14559991

PATIENT
  Age: 56 Year
  Sex: Female

DRUGS (4)
  1. ABILIFY [Suspect]
     Indication: SCHIZOAFFECTIVE DISORDER
     Dosage: INCREASED TO 15 MG DAILY
     Dates: start: 20090101, end: 20090320
  2. NORSET [Suspect]
     Dosage: 2 TABLET/D
  3. SOLIAN [Suspect]
     Dosage: 2 TABLETS/DAY
  4. MEPRONIZINE [Suspect]
     Dosage: TABLET

REACTIONS (2)
  - RENAL FAILURE ACUTE [None]
  - URINARY RETENTION [None]
